FAERS Safety Report 4519452-1 (Version None)
Quarter: 2004Q4

REPORT INFORMATION
  Report Type: 
  Country: None (occurrence: None)
  Receive Date: 20041202
  Receipt Date: 20041119
  Transmission Date: 20050328
  Serious: Yes (Hospitalization)
  Sender: FDA-Public Use
  Company Number: 2004_000094

PATIENT
  Age: 14 Year
  Sex: Male

DRUGS (12)
  1. DEPOCYT [Suspect]
     Indication: ACUTE LYMPHOCYTIC LEUKAEMIA
     Dosage: 50 MG; INTRATHECAL
     Route: 037
     Dates: start: 20040519, end: 20040811
  2. OXYCONTIN [Concomitant]
  3. LOSEC MUPS [Concomitant]
  4. DIFLUCAN [Concomitant]
  5. PROGRAF [Concomitant]
  6. IMPORTAL [Concomitant]
  7. NOZINAN [Concomitant]
  8. SAROTEN [Concomitant]
  9. BETAPRED [Concomitant]
  10. STESOLID [Concomitant]
  11. SANDOMIGRIN [Concomitant]
  12. GEAVIR [Concomitant]

REACTIONS (8)
  - BLAST CELLS PRESENT [None]
  - GRAFT VERSUS HOST DISEASE [None]
  - HEADACHE [None]
  - INTRACRANIAL PRESSURE INCREASED [None]
  - MUSCULOSKELETAL STIFFNESS [None]
  - NAUSEA [None]
  - PAPILLOEDEMA [None]
  - VOMITING [None]
